FAERS Safety Report 10261637 (Version 1)
Quarter: 2014Q2

REPORT INFORMATION
  Report Type: Spontaneous
  Country: US (occurrence: US)
  Receive Date: 20140626
  Receipt Date: 20140626
  Transmission Date: 20141212
  Serious: Yes (Other)
  Sender: FDA-Public Use
  Company Number: CHPA2014US008635

PATIENT
  Sex: 0

DRUGS (2)
  1. EXCEDRIN UNKNOWN [Suspect]
     Indication: MIGRAINE
     Route: 048
  2. EXCEDRIN UNKNOWN [Suspect]
     Indication: HEADACHE

REACTIONS (3)
  - Colon injury [Unknown]
  - Medication overuse headache [Unknown]
  - Incorrect drug administration duration [Unknown]
